FAERS Safety Report 10425973 (Version 1)
Quarter: 2014Q3

REPORT INFORMATION
  Report Type: Report from Study
  Country: DE (occurrence: DE)
  Receive Date: 20140903
  Receipt Date: 20140903
  Transmission Date: 20150326
  Serious: Yes (Other)
  Sender: FDA-Public Use
  Company Number: DE-BIOGENIDEC-2014BI087365

PATIENT
  Age: 48 Year
  Sex: Female

DRUGS (1)
  1. TECFIDERA [Suspect]
     Active Substance: DIMETHYL FUMARATE
     Indication: PRODUCT USED FOR UNKNOWN INDICATION
     Route: 048
     Dates: start: 20140221

REACTIONS (2)
  - Chest pain [Not Recovered/Not Resolved]
  - Blood pressure increased [Not Recovered/Not Resolved]

NARRATIVE: CASE EVENT DATE: 201407
